FAERS Safety Report 11928063 (Version 2)
Quarter: 2016Q1

REPORT INFORMATION
  Report Type: Spontaneous
  Country: CA (occurrence: CA)
  Receive Date: 20160119
  Receipt Date: 20160202
  Transmission Date: 20160526
  Serious: Yes (Death, Other)
  Sender: FDA-Public Use
  Company Number: CA-ELI_LILLY_AND_COMPANY-CA201601005021

PATIENT
  Age: 87 Year
  Sex: Female

DRUGS (1)
  1. GEMZAR [Suspect]
     Active Substance: GEMCITABINE HYDROCHLORIDE
     Indication: BREAST CANCER
     Dosage: UNK, WEEKLY (1/W)
     Route: 065

REACTIONS (3)
  - Respiratory failure [Unknown]
  - Malignant neoplasm progression [Fatal]
  - Oedema peripheral [Unknown]
